FAERS Safety Report 9808619 (Version 1)
Quarter: 2014Q1

REPORT INFORMATION
  Report Type: Spontaneous
  Country: US (occurrence: US)
  Receive Date: 20140110
  Receipt Date: 20140110
  Transmission Date: 20141002
  Serious: No
  Sender: FDA-Public Use
  Company Number: US-BRISTOL-MYERS SQUIBB COMPANY-19502525

PATIENT
  Age: 47 Year
  Sex: Male
  Weight: 73.01 kg

DRUGS (7)
  1. NULOJIX [Suspect]
     Indication: RENAL TRANSPLANT
     Dosage: DOSING SCHEDULE: WEEK 0, 2, 4, 6, 8 THEN MONTHLY
     Dates: start: 20130614
  2. CELLCEPT [Concomitant]
  3. NORVASC [Concomitant]
  4. LOPRESSOR [Concomitant]
  5. MAGNESIUM CHLORIDE [Concomitant]
  6. VITAMIN D [Concomitant]
  7. LOMOTIL [Concomitant]
     Dosage: 1DF: 1TAB

REACTIONS (1)
  - Rash [Unknown]
